FAERS Safety Report 20875146 (Version 1)
Quarter: 2022Q2

REPORT INFORMATION
  Report Type: Spontaneous
  Country: DE (occurrence: None)
  Receive Date: 20220526
  Receipt Date: 20220526
  Transmission Date: 20220721
  Serious: Yes (Other)
  Sender: FDA-Public Use
  Company Number: DE-ROCHE-3104204

PATIENT
  Age: 52 Year
  Sex: Female

DRUGS (1)
  1. OCREVUS [Suspect]
     Active Substance: OCRELIZUMAB
     Indication: Multiple sclerosis
     Dosage: MOST SUBSEQUENT DOSE ON 09/SEP/2020
     Route: 042
     Dates: start: 20181119

REACTIONS (1)
  - Breast cancer in situ [Unknown]

NARRATIVE: CASE EVENT DATE: 20201201
